FAERS Safety Report 5127980-3 (Version None)
Quarter: 2006Q4

REPORT INFORMATION
  Report Type: 
  Country: None (occurrence: None)
  Receive Date: 20061010
  Receipt Date: 20060928
  Transmission Date: 20070319
  Serious: Yes (Other)
  Sender: FDA-Public Use
  Company Number: 2006121118

PATIENT
  Age: 55 Year
  Sex: Male

DRUGS (1)
  1. CELEBREX [Suspect]
     Dosage: (INTERVAL: 2-3 TIMES/WEEK)

REACTIONS (1)
  - INFARCTION [None]
